FAERS Safety Report 12037148 (Version 1)
Quarter: 2016Q1

REPORT INFORMATION
  Report Type: Spontaneous
  Country: US (occurrence: None)
  Receive Date: 20160205
  Receipt Date: 20160205
  Transmission Date: 20160526
  Serious: No
  Sender: FDA-Public Use
  Company Number: None

PATIENT
  Age: 61 Year
  Sex: Female

DRUGS (1)
  1. STELARA [Suspect]
     Active Substance: USTEKINUMAB
     Indication: RHEUMATOID ARTHRITIS
     Dosage: 90MG, Q12WEEKS, SC
     Dates: start: 20151222

REACTIONS (2)
  - Needle issue [None]
  - Product quality issue [None]

NARRATIVE: CASE EVENT DATE: 20160202
